FAERS Safety Report 7681450-7 (Version None)
Quarter: 2011Q3

REPORT INFORMATION
  Report Type: 
  Country: None (occurrence: None)
  Receive Date: 20110812
  Receipt Date: 20110802
  Transmission Date: 20111222
  Serious: Yes (Hospitalization)
  Sender: FDA-Public Use
  Company Number: US-CELGENEUS-163-21660-11070941

PATIENT
  Sex: Female
  Weight: 86.714 kg

DRUGS (8)
  1. BEVACIZUMAB [Suspect]
     Indication: BREAST CANCER
     Route: 065
     Dates: start: 20110609, end: 20110706
  2. EFFEXOR [Concomitant]
     Indication: DEPRESSION
     Dosage: 75 MILLIGRAM
     Route: 048
     Dates: start: 20110623
  3. BEVACIZUMAB [Suspect]
     Route: 065
     Dates: start: 20110714
  4. OXYCODONE HCL [Concomitant]
     Indication: PAIN
     Dosage: 5 MILLIGRAM
     Route: 048
     Dates: start: 20110615
  5. COLACE [Concomitant]
     Indication: CONSTIPATION
     Dosage: 100 MILLIGRAM
     Route: 048
     Dates: start: 20110628
  6. ABRAXANE [Suspect]
     Indication: BREAST CANCER FEMALE
     Route: 041
     Dates: start: 20110609, end: 20110706
  7. ABRAXANE [Suspect]
     Route: 041
     Dates: start: 20110714
  8. BACTRIM DS [Concomitant]
     Dosage: 1 TABLET
     Route: 048
     Dates: start: 20110623

REACTIONS (2)
  - THROMBOCYTOPENIA [None]
  - SINUSITIS [None]
